FAERS Safety Report 6356646-7 (Version None)
Quarter: 2009Q3

REPORT INFORMATION
  Report Type: 
  Country: None (occurrence: None)
  Receive Date: 20090910
  Receipt Date: 20090910
  Transmission Date: 20100115
  Serious: Yes (Death, Hospitalization)
  Sender: FDA-Public Use
  Company Number: None

PATIENT
  Sex: Female
  Weight: 45 kg

DRUGS (1)
  1. SORAFENIB 200 MG BAYER [Suspect]
     Indication: PULMONARY ARTERIAL HYPERTENSION
     Dosage: 200 MG TID PO
     Route: 048
     Dates: start: 20080113, end: 20090813

REACTIONS (10)
  - ACUTE RESPIRATORY DISTRESS SYNDROME [None]
  - BRADYCARDIA [None]
  - CARDIAC ARREST [None]
  - CATHETER RELATED INFECTION [None]
  - CATHETER SITE HAEMORRHAGE [None]
  - CONDITION AGGRAVATED [None]
  - HYPOTENSION [None]
  - HYPOXIA [None]
  - PSEUDOMONAS INFECTION [None]
  - RIGHT VENTRICULAR FAILURE [None]
